FAERS Safety Report 5841964-9 (Version None)
Quarter: 2008Q3

REPORT INFORMATION
  Report Type: 
  Country: None (occurrence: None)
  Receive Date: 20080811
  Receipt Date: 20080811
  Transmission Date: 20090109
  Serious: Yes (Other)
  Sender: FDA-Public Use
  Company Number: None

PATIENT
  Age: 71 Year
  Sex: Female
  Weight: 68.0396 kg

DRUGS (1)
  1. DEPAKOTE [Suspect]

REACTIONS (4)
  - APHONIA [None]
  - DRUG DISPENSING ERROR [None]
  - TONGUE PARALYSIS [None]
  - WRONG TECHNIQUE IN DRUG USAGE PROCESS [None]
